FAERS Safety Report 25991217 (Version 1)
Quarter: 2025Q4

REPORT INFORMATION
  Report Type: Spontaneous
  Country: US (occurrence: US)
  Receive Date: 20251103
  Receipt Date: 20251103
  Transmission Date: 20260118
  Serious: No
  Sender: SANOFI AVENTIS
  Company Number: US-SANOFI-02698115

PATIENT
  Age: 83 Year
  Sex: Female

DRUGS (1)
  1. KEVZARA [Suspect]
     Active Substance: SARILUMAB
     Indication: Rheumatoid arthritis
     Dosage: 200.000MG QOW
     Route: 058

REACTIONS (1)
  - Injection site rash [Unknown]

NARRATIVE: CASE EVENT DATE: 20251022
